FAERS Safety Report 9611794 (Version 1)
Quarter: 2013Q4

REPORT INFORMATION
  Report Type: Spontaneous
  Country: CA (occurrence: CA)
  Receive Date: 20131010
  Receipt Date: 20131010
  Transmission Date: 20140711
  Serious: Yes (Hospitalization)
  Sender: FDA-Public Use
  Company Number: CA-JNJFOC-20131000556

PATIENT
  Age: 30 Year
  Sex: Male

DRUGS (7)
  1. TOPIRAMATE [Suspect]
     Indication: STATUS EPILEPTICUS
     Route: 048
  2. PHENOBARBITAL [Suspect]
     Indication: STATUS EPILEPTICUS
     Route: 065
  3. LEVETIRACETAM [Suspect]
     Indication: STATUS EPILEPTICUS
     Route: 065
  4. LACOSAMIDE [Suspect]
     Indication: STATUS EPILEPTICUS
     Route: 065
  5. VIGABATRIN [Suspect]
     Indication: STATUS EPILEPTICUS
     Route: 065
  6. GABAPENTIN [Suspect]
     Indication: STATUS EPILEPTICUS
     Route: 065
  7. ACYCLOVIR [Suspect]
     Indication: STATUS EPILEPTICUS
     Route: 065

REACTIONS (3)
  - Condition aggravated [Unknown]
  - Loss of consciousness [Unknown]
  - Off label use [Unknown]
